FAERS Safety Report 8035921-4 (Version None)
Quarter: 2012Q1

REPORT INFORMATION
  Report Type: 
  Country: None (occurrence: None)
  Receive Date: 20120106
  Receipt Date: 20111222
  Transmission Date: 20120608
  Serious: Yes (Death, Disabling)
  Sender: FDA-Public Use
  Company Number: JP-2011-11401

PATIENT
  Age: 77 Year
  Sex: Male
  Weight: 56 kg

DRUGS (9)
  1. CONCENTRATED RED CELLS (CONCENTRATED HUMAN RED BLOOD CELLS) INJECTION [Concomitant]
  2. SAMSCA [Suspect]
     Indication: POLYURIA
     Dosage: 15 MG MILLIGRAM(S), QD, ORAL
     Route: 048
     Dates: start: 20110810, end: 20110816
  3. PLAVIX [Suspect]
     Indication: THROMBOSIS PROPHYLAXIS
     Dosage: 75 MG MILLIGRAM(S), QD, ORAL
     Route: 048
     Dates: start: 20110809
  4. DORIPENEM [Suspect]
     Indication: PNEUMONIA
     Dosage: 0.25 G GRAM(S), TID, INTRAVENOUS
     Route: 042
     Dates: start: 20110810, end: 20110827
  5. FLUITRAN (TRICHLORMETHIAZIDE) TABLET [Concomitant]
  6. DORMICUM (MIDAZOLAM) INJECTION [Concomitant]
  7. ASPIRIN [Concomitant]
  8. CONCENTRATED RED CELLS (CONCENTRATED HUMAN RED BLOOD CELLS) INJECTION [Concomitant]
  9. LASIX [Concomitant]

REACTIONS (4)
  - MENINGITIS [None]
  - INTERSTITIAL LUNG DISEASE [None]
  - BLOOD UREA INCREASED [None]
  - PULMONARY ALVEOLAR HAEMORRHAGE [None]
